FAERS Safety Report 21801876 (Version 1)
Quarter: 2022Q4

REPORT INFORMATION
  Report Type: Report from Study
  Country: US (occurrence: US)
  Receive Date: 20221230
  Receipt Date: 20221230
  Transmission Date: 20230112
  Serious: No
  Sender: FDA-Public Use
  Company Number: US-ACORDA-ACO_172017_2022

PATIENT
  Sex: Female

DRUGS (4)
  1. INBRIJA [Suspect]
     Active Substance: LEVODOPA
     Indication: Parkinson^s disease
     Dosage: 84 MILLIGRAM (2 CAPSULES) , PRN (NOT TO EXCEED 5 DOSES PER DAY)
     Dates: start: 20220309
  2. INBRIJA [Suspect]
     Active Substance: LEVODOPA
     Indication: On and off phenomenon
     Dosage: 84 MILLIGRAM (2 CAPSULES) , PRN (NOT TO EXCEED 5 DOSES PER DAY)
     Dates: start: 20220310
  3. CARBIDOPA\LEVODOPA [Concomitant]
     Active Substance: CARBIDOPA\LEVODOPA
     Indication: Product used for unknown indication
     Dosage: 25/250 (1 TABLET), Q 6 HRS
     Route: 065
  4. ROPINIROLE [Concomitant]
     Active Substance: ROPINIROLE
     Indication: Product used for unknown indication
     Dosage: 3 MILLIGRAM, Q 8 HRS

REACTIONS (3)
  - Choking [Not Recovered/Not Resolved]
  - Device use issue [Unknown]
  - Wrong technique in device usage process [Unknown]
